FAERS Safety Report 8759516 (Version 2)
Quarter: 2012Q4

REPORT INFORMATION
  Report Type: 
  Country: US (occurrence: US)
  Receive Date: 20120829
  Receipt Date: 20120926
  Transmission Date: 20130627
  Serious: No
  Sender: FDA-Public Use
  Company Number: US-009507513-1208USA003107

PATIENT

DRUGS (2)
  1. AZASITE [Suspect]
     Indication: CONJUNCTIVITIS BACTERIAL
     Dosage: 2 DF, bid
     Route: 047
     Dates: start: 20120731, end: 20120801
  2. AZASITE [Suspect]
     Dosage: 1 DF, qd
     Dates: start: 20120802

REACTIONS (3)
  - Drug dose omission [Unknown]
  - Product quality issue [Unknown]
  - No adverse event [Unknown]
